FAERS Safety Report 24961634 (Version 2)
Quarter: 2025Q1

REPORT INFORMATION
  Report Type: Report from Study
  Country: US (occurrence: US)
  Receive Date: 20250212
  Receipt Date: 20250216
  Transmission Date: 20250408
  Serious: Yes (Hospitalization, Other)
  Sender: ABBVIE
  Company Number: US-ABBVIE-6127220

PATIENT
  Age: 68 Year
  Sex: Female
  Weight: 68.038 kg

DRUGS (1)
  1. HUMIRA [Suspect]
     Active Substance: ADALIMUMAB
     Indication: Rheumatoid arthritis
     Dosage: FORM STRENGTH: 40 MILLIGRAM/CITRATE FREE
     Route: 058
     Dates: start: 202408, end: 202412

REACTIONS (5)
  - Chronic obstructive pulmonary disease [Recovering/Resolving]
  - Pulmonary thrombosis [Recovered/Resolved]
  - Pneumonia [Recovered/Resolved]
  - Peripheral swelling [Recovering/Resolving]
  - Respiration abnormal [Recovered/Resolved]

NARRATIVE: CASE EVENT DATE: 20241101
